FAERS Safety Report 13942386 (Version 2)
Quarter: 2017Q4

REPORT INFORMATION
  Report Type: Spontaneous
  Country: RU (occurrence: RU)
  Receive Date: 20170907
  Receipt Date: 20171229
  Transmission Date: 20180320
  Serious: Yes (Death, Hospitalization, Other)
  Sender: FDA-Public Use
  Company Number: RU-ASTRAZENECA-2017SE89968

PATIENT
  Age: 84 Year
  Sex: Female
  Weight: 64 kg

DRUGS (6)
  1. GLUCOPHAG [Concomitant]
     Active Substance: METFORMIN HYDROCHLORIDE
     Dates: start: 2016
  2. THROMBOASS [Concomitant]
     Active Substance: ASPIRIN
  3. RAMIPRIL. [Concomitant]
     Active Substance: RAMIPRIL
  4. ROSUVASTATIN. [Concomitant]
     Active Substance: ROSUVASTATIN
  5. INSULIN [Concomitant]
     Active Substance: INSULIN NOS
  6. BRILINTA [Suspect]
     Active Substance: TICAGRELOR
     Indication: MYOCARDIAL INFARCTION
     Route: 048
     Dates: start: 20161024

REACTIONS (3)
  - Arrhythmia [Not Recovered/Not Resolved]
  - Myocardial infarction [Fatal]
  - Bradycardia [Not Recovered/Not Resolved]

NARRATIVE: CASE EVENT DATE: 201611
